FAERS Safety Report 9367185 (Version 1)
Quarter: 2013Q2

REPORT INFORMATION
  Report Type: Spontaneous
  Country: US (occurrence: US)
  Receive Date: 20130625
  Receipt Date: 20130625
  Transmission Date: 20140414
  Serious: No
  Sender: FDA-Public Use
  Company Number: US-ASTELLAS-2012US005608

PATIENT
  Sex: Female
  Weight: 76 kg

DRUGS (2)
  1. VESICARE [Suspect]
     Indication: HYPERTONIC BLADDER
     Dosage: 5 MG, UID/QD
     Route: 048
     Dates: start: 201205, end: 2012
  2. VESICARE [Suspect]
     Dosage: 5 MG, UID/QD
     Route: 048
     Dates: start: 201206

REACTIONS (7)
  - Pyrexia [Unknown]
  - Oropharyngeal pain [Unknown]
  - Dizziness [Unknown]
  - Dizziness [Unknown]
  - Rash [Unknown]
  - Rash [Unknown]
  - Nausea [Unknown]
